FAERS Safety Report 8465668-1 (Version None)
Quarter: 2012Q2

REPORT INFORMATION
  Report Type: 
  Country: None (occurrence: None)
  Receive Date: 20120620
  Receipt Date: 20120620
  Transmission Date: 20120825
  Serious: Yes (Hospitalization, Other)
  Sender: FDA-Public Use
  Company Number: None

PATIENT
  Sex: Female

DRUGS (1)
  1. MACROBID [Suspect]
     Indication: URINARY TRACT INFECTION
     Dosage: 100 MG, 21 DAY, ORAL
     Route: 048
     Dates: start: 20120527, end: 20120601

REACTIONS (6)
  - HYPOAESTHESIA [None]
  - ERYTHEMA [None]
  - PAIN IN EXTREMITY [None]
  - GAIT DISTURBANCE [None]
  - OEDEMA PERIPHERAL [None]
  - PARAESTHESIA [None]
